FAERS Safety Report 5235335-6 (Version None)
Quarter: 2007Q1

REPORT INFORMATION
  Report Type: 
  Country: None (occurrence: None)
  Receive Date: 20070207
  Receipt Date: 20070207
  Transmission Date: 20070707
  Serious: Yes (Hospitalization)
  Sender: FDA-Public Use
  Company Number: None

PATIENT
  Age: 51 Year
  Sex: Female

DRUGS (7)
  1. IMATINIB MESYLATE [Suspect]
     Indication: GLIOBLASTOMA MULTIFORME
     Dosage: 500 MG BID
     Dates: start: 20061003, end: 20070125
  2. PTK [Suspect]
     Indication: GLIOBLASTOMA MULTIFORME
     Dosage: 1250 MG BID
     Dates: start: 20060926, end: 20070125
  3. HYDROXYUREA [Suspect]
     Indication: GLIOBLASTOMA MULTIFORME
     Dosage: 500 MG BID
     Dates: start: 20061003, end: 20070125
  4. DEXAMETHASONE [Concomitant]
  5. DILANTIN [Concomitant]
  6. ZYRTEC [Concomitant]
  7. NEXIUM [Concomitant]

REACTIONS (7)
  - BLOOD THYROID STIMULATING HORMONE INCREASED [None]
  - CHEST PAIN [None]
  - DIZZINESS [None]
  - LEUKOPENIA [None]
  - MYOCARDIAL ISCHAEMIA [None]
  - NEUTROPHIL COUNT DECREASED [None]
  - SUPRAVENTRICULAR TACHYCARDIA [None]
